FAERS Safety Report 21081046 (Version 1)
Quarter: 2022Q3

REPORT INFORMATION
  Report Type: Spontaneous
  Country: US (occurrence: US)
  Receive Date: 20220714
  Receipt Date: 20220714
  Transmission Date: 20221027
  Serious: Yes (Hospitalization)
  Sender: FDA-Public Use
  Company Number: US-PROCTER_AND_GAMBLE-GS22062292

PATIENT
  Age: 12 Year
  Sex: Female

DRUGS (1)
  1. SECRET BERRY CLEAR [Suspect]
     Active Substance: ALUMINUM ZIRCONIUM OCTACHLOROHYDREX GLY
     Dosage: 2-3 SWIPES PER ARM, USED ONCE A DAY.
     Route: 061
     Dates: end: 202206

REACTIONS (4)
  - Hypersensitivity [Unknown]
  - Dizziness [Unknown]
  - Pallor [Recovered/Resolved]
  - Skin burning sensation [Recovered/Resolved]

NARRATIVE: CASE EVENT DATE: 20220601
